FAERS Safety Report 13125042 (Version 3)
Quarter: 2017Q1

REPORT INFORMATION
  Report Type: Spontaneous
  Country: FR (occurrence: FR)
  Receive Date: 20170118
  Receipt Date: 20170201
  Transmission Date: 20170428
  Serious: Yes (Death, Other)
  Sender: FDA-Public Use
  Company Number: FR-ASTRAZENECA-2017SE04234

PATIENT
  Age: 18866 Day
  Sex: Female
  Weight: 76 kg

DRUGS (9)
  1. TAGRISSO [Interacting]
     Active Substance: OSIMERTINIB
     Indication: EGFR GENE MUTATION
     Route: 048
     Dates: start: 20160812, end: 20170106
  2. OXYNORMORO [Concomitant]
     Active Substance: OXYCODONE
  3. EFFEXOR [Concomitant]
     Active Substance: VENLAFAXINE HYDROCHLORIDE
     Dosage: 37.5MG UNKNOWN
     Dates: start: 20161129
  4. ACTISKENAN [Concomitant]
     Active Substance: MORPHINE SULFATE
     Dates: start: 20161021, end: 20161129
  5. TAGRISSO [Suspect]
     Active Substance: OSIMERTINIB
     Indication: NON-SMALL CELL LUNG CANCER
     Route: 048
     Dates: start: 20160812, end: 20170106
  6. OXYCONTIN [Interacting]
     Active Substance: OXYCODONE HYDROCHLORIDE
     Route: 065
     Dates: end: 20161021
  7. KEPPRA [Concomitant]
     Active Substance: LEVETIRACETAM
  8. LEXOMIL [Concomitant]
     Active Substance: BROMAZEPAM
  9. TRAMADOL BASE [Concomitant]
     Active Substance: TRAMADOL
     Indication: PAIN

REACTIONS (4)
  - Drug interaction [Unknown]
  - Malignant neoplasm progression [Fatal]
  - Thyroiditis subacute [Not Recovered/Not Resolved]
  - Metastases to meninges [Unknown]

NARRATIVE: CASE EVENT DATE: 20161216
